FAERS Safety Report 24382249 (Version 2)
Quarter: 2025Q1

REPORT INFORMATION
  Report Type: Report from Study
  Country: US (occurrence: US)
  Receive Date: 20241001
  Receipt Date: 20250211
  Transmission Date: 20250409
  Serious: Yes (Hospitalization, Other)
  Sender: TAKEDA
  Company Number: US-TAKEDA-US202021995

PATIENT
  Sex: Female

DRUGS (2)
  1. HUMAN IMMUNOGLOBULIN G [Suspect]
     Active Substance: HUMAN IMMUNOGLOBULIN G
     Indication: Primary immunodeficiency syndrome
  2. HUMAN IMMUNOGLOBULIN G [Suspect]
     Active Substance: HUMAN IMMUNOGLOBULIN G
     Dosage: UNK UNK, MONTHLY

REACTIONS (13)
  - Norovirus infection [Unknown]
  - Adrenocortical insufficiency acute [Unknown]
  - Obstruction [Unknown]
  - Infusion related reaction [Unknown]
  - Asthma [Unknown]
  - Immunoglobulins abnormal [Not Recovered/Not Resolved]
  - Pregnancy [Recovered/Resolved]
  - Illness [Unknown]
  - Bronchitis [Unknown]
  - COVID-19 [Unknown]
  - Inappropriate schedule of product administration [Unknown]
  - Sinusitis [Unknown]
  - Headache [Unknown]
